FAERS Safety Report 14207761 (Version 1)
Quarter: 2017Q4

REPORT INFORMATION
  Report Type: Spontaneous
  Country: US (occurrence: US)
  Receive Date: 20171121
  Receipt Date: 20171121
  Transmission Date: 20180321
  Serious: No
  Sender: FDA-Public Use
  Company Number: US-JNJFOC-20171109628

PATIENT
  Sex: Female

DRUGS (12)
  1. CALCITRIOL. [Concomitant]
     Active Substance: CALCITRIOL
  2. IMBRUVICA [Suspect]
     Active Substance: IBRUTINIB
     Indication: EXTRANODAL MARGINAL ZONE B-CELL LYMPHOMA (MALT TYPE)
     Route: 048
     Dates: start: 20170925
  3. COMPAZINE [Concomitant]
     Active Substance: PROCHLORPERAZINE MALEATE
  4. CALTRATE 600+D3 PLUS MINERALS [Concomitant]
  5. FISH OIL [Concomitant]
     Active Substance: FISH OIL
  6. RANITIDINE. [Concomitant]
     Active Substance: RANITIDINE
  7. SYSTANE (HYPROMELLOSE 2910 (4000 MPA.S)) [Concomitant]
     Active Substance: HYPROMELLOSE 2910 (4000 MPA.S)
  8. TYLENOL [Concomitant]
     Active Substance: ACETAMINOPHEN
  9. ZOVIRAX [Concomitant]
     Active Substance: ACYCLOVIR
  10. CARVEDILOL. [Concomitant]
     Active Substance: CARVEDILOL
  11. PLANTAGO OVATA [Concomitant]
     Active Substance: HERBALS\PLANTAGO OVATA LEAF
  12. PROLIA [Concomitant]
     Active Substance: DENOSUMAB

REACTIONS (1)
  - Headache [Not Recovered/Not Resolved]

NARRATIVE: CASE EVENT DATE: 2017
